FAERS Safety Report 8925068 (Version 1)
Quarter: 2012Q4

REPORT INFORMATION
  Report Type: Spontaneous
  Country: US (occurrence: None)
  Receive Date: 20121126
  Receipt Date: 20121126
  Transmission Date: 20130627
  Serious: Yes (Other)
  Sender: FDA-Public Use
  Company Number: None

PATIENT
  Age: 38 Year
  Sex: Female
  Weight: 58.97 kg

DRUGS (1)
  1. KENALOG [Suspect]
     Indication: ALLERGIC REACTION
     Dosage: 10 mg 1 im one time shot
     Dates: start: 20120905, end: 20120905

REACTIONS (1)
  - Skin atrophy [None]
